FAERS Safety Report 25543331 (Version 1)
Quarter: 2025Q3

REPORT INFORMATION
  Report Type: Spontaneous
  Country: US (occurrence: US)
  Receive Date: 20250711
  Receipt Date: 20250711
  Transmission Date: 20251021
  Serious: Yes (Other)
  Sender: MYLAN
  Company Number: US-MYLANLABS-2025M1057692

PATIENT
  Sex: Male

DRUGS (68)
  1. SERTRALINE [Suspect]
     Active Substance: SERTRALINE HYDROCHLORIDE
     Indication: Generalised anxiety disorder
  2. SERTRALINE [Suspect]
     Active Substance: SERTRALINE HYDROCHLORIDE
     Route: 065
  3. SERTRALINE [Suspect]
     Active Substance: SERTRALINE HYDROCHLORIDE
     Route: 065
  4. SERTRALINE [Suspect]
     Active Substance: SERTRALINE HYDROCHLORIDE
  5. ZIPRASIDONE [Suspect]
     Active Substance: ZIPRASIDONE
     Indication: Generalised anxiety disorder
     Dosage: 20 MILLIGRAM, BID
  6. ZIPRASIDONE [Suspect]
     Active Substance: ZIPRASIDONE
     Indication: Self-destructive behaviour
     Dosage: 20 MILLIGRAM, BID
  7. ZIPRASIDONE [Suspect]
     Active Substance: ZIPRASIDONE
     Dosage: 20 MILLIGRAM, BID
     Route: 065
  8. ZIPRASIDONE [Suspect]
     Active Substance: ZIPRASIDONE
     Dosage: 20 MILLIGRAM, BID
     Route: 065
  9. ZIPRASIDONE [Suspect]
     Active Substance: ZIPRASIDONE
     Dosage: 40 MILLIGRAM, BID
  10. ZIPRASIDONE [Suspect]
     Active Substance: ZIPRASIDONE
     Dosage: 40 MILLIGRAM, BID
  11. ZIPRASIDONE [Suspect]
     Active Substance: ZIPRASIDONE
     Dosage: 40 MILLIGRAM, BID
     Route: 065
  12. ZIPRASIDONE [Suspect]
     Active Substance: ZIPRASIDONE
     Dosage: 40 MILLIGRAM, BID
     Route: 065
  13. ZIPRASIDONE [Suspect]
     Active Substance: ZIPRASIDONE
  14. ZIPRASIDONE [Suspect]
     Active Substance: ZIPRASIDONE
     Route: 065
  15. ZIPRASIDONE [Suspect]
     Active Substance: ZIPRASIDONE
  16. ZIPRASIDONE [Suspect]
     Active Substance: ZIPRASIDONE
     Route: 065
  17. BUSPIRONE [Suspect]
     Active Substance: BUSPIRONE HYDROCHLORIDE
     Indication: Generalised anxiety disorder
     Dosage: 15 MILLIGRAM, BID (FOR 2 MONTHS)
  18. BUSPIRONE [Suspect]
     Active Substance: BUSPIRONE HYDROCHLORIDE
     Indication: Self-destructive behaviour
     Dosage: 15 MILLIGRAM, BID (FOR 2 MONTHS)
  19. BUSPIRONE [Suspect]
     Active Substance: BUSPIRONE HYDROCHLORIDE
     Dosage: 15 MILLIGRAM, BID (FOR 2 MONTHS)
     Route: 065
  20. BUSPIRONE [Suspect]
     Active Substance: BUSPIRONE HYDROCHLORIDE
     Dosage: 15 MILLIGRAM, BID (FOR 2 MONTHS)
     Route: 065
  21. BUSPIRONE [Suspect]
     Active Substance: BUSPIRONE HYDROCHLORIDE
  22. BUSPIRONE [Suspect]
     Active Substance: BUSPIRONE HYDROCHLORIDE
  23. BUSPIRONE [Suspect]
     Active Substance: BUSPIRONE HYDROCHLORIDE
     Route: 065
  24. BUSPIRONE [Suspect]
     Active Substance: BUSPIRONE HYDROCHLORIDE
     Route: 065
  25. OXCARBAZEPINE [Suspect]
     Active Substance: OXCARBAZEPINE
     Indication: Generalised anxiety disorder
     Dosage: 300 MILLIGRAM, BID
  26. OXCARBAZEPINE [Suspect]
     Active Substance: OXCARBAZEPINE
     Indication: Self-destructive behaviour
     Dosage: 300 MILLIGRAM, BID
  27. OXCARBAZEPINE [Suspect]
     Active Substance: OXCARBAZEPINE
     Dosage: 300 MILLIGRAM, BID
     Route: 065
  28. OXCARBAZEPINE [Suspect]
     Active Substance: OXCARBAZEPINE
     Dosage: 300 MILLIGRAM, BID
     Route: 065
  29. OXCARBAZEPINE [Suspect]
     Active Substance: OXCARBAZEPINE
  30. OXCARBAZEPINE [Suspect]
     Active Substance: OXCARBAZEPINE
  31. OXCARBAZEPINE [Suspect]
     Active Substance: OXCARBAZEPINE
     Route: 065
  32. OXCARBAZEPINE [Suspect]
     Active Substance: OXCARBAZEPINE
     Route: 065
  33. GUANFACINE [Suspect]
     Active Substance: GUANFACINE
     Indication: Generalised anxiety disorder
  34. GUANFACINE [Suspect]
     Active Substance: GUANFACINE
     Route: 065
  35. GUANFACINE [Suspect]
     Active Substance: GUANFACINE
     Route: 065
  36. GUANFACINE [Suspect]
     Active Substance: GUANFACINE
  37. NALTREXONE [Suspect]
     Active Substance: NALTREXONE
     Indication: Generalised anxiety disorder
     Dosage: 25 MILLIGRAM, BID (FOR 2 WEEKS)
     Route: 065
  38. NALTREXONE [Suspect]
     Active Substance: NALTREXONE
     Indication: Self-destructive behaviour
     Dosage: 25 MILLIGRAM, BID (FOR 2 WEEKS)
  39. NALTREXONE [Suspect]
     Active Substance: NALTREXONE
     Dosage: 25 MILLIGRAM, BID (FOR 2 WEEKS)
  40. NALTREXONE [Suspect]
     Active Substance: NALTREXONE
     Dosage: 25 MILLIGRAM, BID (FOR 2 WEEKS)
     Route: 065
  41. NALTREXONE [Suspect]
     Active Substance: NALTREXONE
     Dosage: 50 MILLIGRAM, QD (FOR 6 WEEKS)
     Route: 065
  42. NALTREXONE [Suspect]
     Active Substance: NALTREXONE
     Dosage: 50 MILLIGRAM, QD (FOR 6 WEEKS)
  43. NALTREXONE [Suspect]
     Active Substance: NALTREXONE
     Dosage: 50 MILLIGRAM, QD (FOR 6 WEEKS)
  44. NALTREXONE [Suspect]
     Active Substance: NALTREXONE
     Dosage: 50 MILLIGRAM, QD (FOR 6 WEEKS)
     Route: 065
  45. NALTREXONE [Suspect]
     Active Substance: NALTREXONE
     Dosage: 100 MILLIGRAM, QD (FOR 2 WEEKS)
  46. NALTREXONE [Suspect]
     Active Substance: NALTREXONE
     Dosage: 100 MILLIGRAM, QD (FOR 2 WEEKS)
  47. NALTREXONE [Suspect]
     Active Substance: NALTREXONE
     Dosage: 100 MILLIGRAM, QD (FOR 2 WEEKS)
     Route: 065
  48. NALTREXONE [Suspect]
     Active Substance: NALTREXONE
     Dosage: 100 MILLIGRAM, QD (FOR 2 WEEKS)
     Route: 065
  49. NALTREXONE [Suspect]
     Active Substance: NALTREXONE
  50. NALTREXONE [Suspect]
     Active Substance: NALTREXONE
  51. NALTREXONE [Suspect]
     Active Substance: NALTREXONE
     Route: 065
  52. NALTREXONE [Suspect]
     Active Substance: NALTREXONE
     Route: 065
  53. LORAZEPAM [Suspect]
     Active Substance: LORAZEPAM
     Indication: Generalised anxiety disorder
  54. LORAZEPAM [Suspect]
     Active Substance: LORAZEPAM
     Route: 065
  55. LORAZEPAM [Suspect]
     Active Substance: LORAZEPAM
     Route: 065
  56. LORAZEPAM [Suspect]
     Active Substance: LORAZEPAM
  57. HYDROXYZINE [Suspect]
     Active Substance: HYDROXYZINE HYDROCHLORIDE
     Indication: Generalised anxiety disorder
     Dosage: 25 MILLIGRAM, TID
  58. HYDROXYZINE [Suspect]
     Active Substance: HYDROXYZINE HYDROCHLORIDE
     Dosage: 25 MILLIGRAM, TID
     Route: 065
  59. HYDROXYZINE [Suspect]
     Active Substance: HYDROXYZINE HYDROCHLORIDE
     Dosage: 25 MILLIGRAM, TID
     Route: 065
  60. HYDROXYZINE [Suspect]
     Active Substance: HYDROXYZINE HYDROCHLORIDE
     Dosage: 25 MILLIGRAM, TID
  61. RISPERIDONE [Concomitant]
     Active Substance: RISPERIDONE
     Indication: Generalised anxiety disorder
     Dosage: 0.5 MILLIGRAM, AM
  62. RISPERIDONE [Concomitant]
     Active Substance: RISPERIDONE
     Dosage: 0.5 MILLIGRAM, AM
  63. RISPERIDONE [Concomitant]
     Active Substance: RISPERIDONE
     Dosage: 0.5 MILLIGRAM, AM
     Route: 065
  64. RISPERIDONE [Concomitant]
     Active Substance: RISPERIDONE
     Dosage: 0.5 MILLIGRAM, AM
     Route: 065
  65. RISPERIDONE [Concomitant]
     Active Substance: RISPERIDONE
  66. RISPERIDONE [Concomitant]
     Active Substance: RISPERIDONE
  67. RISPERIDONE [Concomitant]
     Active Substance: RISPERIDONE
     Route: 065
  68. RISPERIDONE [Concomitant]
     Active Substance: RISPERIDONE
     Route: 065

REACTIONS (2)
  - Drug ineffective [Unknown]
  - Off label use [Unknown]
